FAERS Safety Report 18854868 (Version 1)
Quarter: 2021Q1

REPORT INFORMATION
  Report Type: Spontaneous
  Country: CN (occurrence: CN)
  Receive Date: 20210205
  Receipt Date: 20210205
  Transmission Date: 20210420
  Serious: Yes (Hospitalization)
  Sender: FDA-Public Use
  Company Number: CN-ELI_LILLY_AND_COMPANY-CN202101011152

PATIENT
  Age: 91 Year
  Sex: Male
  Weight: 75 kg

DRUGS (2)
  1. INSULIN GLARGINE [Concomitant]
     Active Substance: INSULIN GLARGINE
     Indication: PRODUCT USED FOR UNKNOWN INDICATION
  2. HUMALOG [Suspect]
     Active Substance: INSULIN LISPRO
     Indication: DIABETES MELLITUS
     Dosage: 10 U, TID
     Route: 058
     Dates: start: 201707

REACTIONS (2)
  - Spinal compression fracture [Recovering/Resolving]
  - Urinary tract infection [Recovering/Resolving]
